FAERS Safety Report 17542457 (Version 2)
Quarter: 2020Q1

REPORT INFORMATION
  Report Type: Report from Study
  Country: TW (occurrence: TW)
  Receive Date: 20200314
  Receipt Date: 20200323
  Transmission Date: 20200409
  Serious: No
  Sender: FDA-Public Use
  Company Number: TW-ACTELION-A-US2020-203071

PATIENT
  Age: 40 Year
  Sex: Female

DRUGS (1)
  1. VENTAVIS [Suspect]
     Active Substance: ILOPROST
     Indication: PULMONARY HYPERTENSION
     Dosage: 10 UG/ML, 1 DF, QID
     Route: 055
     Dates: start: 20191202

REACTIONS (1)
  - Dysmenorrhoea [Unknown]
